FAERS Safety Report 4505084-8 (Version None)
Quarter: 2004Q4

REPORT INFORMATION
  Report Type: 
  Country: None (occurrence: None)
  Receive Date: 20041116
  Receipt Date: 20041103
  Transmission Date: 20050328
  Serious: Yes (Hospitalization)
  Sender: FDA-Public Use
  Company Number: 2004088311

PATIENT
  Age: 86 Year
  Sex: Male

DRUGS (12)
  1. DIFLUCAN [Suspect]
     Indication: PNEUMONIA
     Dosage: 150 MG (150 MG, 1 IN 1 D), ORAL
     Route: 048
     Dates: start: 20040801
  2. ZOPIKLON NM PHARMA (ZOPICLONE) [Suspect]
     Indication: INSOMNIA
     Dosage: 2.5 MG (5 MG, 1 IN 1 D), ORAL
     Route: 048
     Dates: start: 20040801, end: 20040801
  3. FELODIPINE [Concomitant]
  4. FUROSEMIDE [Concomitant]
  5. CLINDAMYCIN HYDROCHLORIDE [Concomitant]
  6. METOPROLOL SUCCINATE [Concomitant]
  7. LOSARTAN POTASSIUM [Concomitant]
  8. SIMVASTATIN [Concomitant]
  9. NITROGLYCERIN [Concomitant]
  10. GLYBURIDE [Concomitant]
  11. ISOSORBIDE MONONITRATE [Concomitant]
  12. ASPIRIN [Concomitant]

REACTIONS (3)
  - DRUG INTERACTION [None]
  - PNEUMONIA [None]
  - SOMNOLENCE [None]
